FAERS Safety Report 23364093 (Version 1)
Quarter: 2024Q1

REPORT INFORMATION
  Report Type: Spontaneous
  Country: US (occurrence: US)
  Receive Date: 20240104
  Receipt Date: 20240104
  Transmission Date: 20240409
  Serious: No
  Sender: FDA-Public Use
  Company Number: US-BEIGENE-BGN-2023-015756

PATIENT

DRUGS (1)
  1. BRUKINSA [Suspect]
     Active Substance: ZANUBRUTINIB
     Indication: Chronic lymphocytic leukaemia
     Dosage: 320 MILLIGRAM, QD
     Route: 065
     Dates: start: 20231218

REACTIONS (3)
  - Nasopharyngitis [Not Recovered/Not Resolved]
  - Rhinorrhoea [Not Recovered/Not Resolved]
  - Nasal obstruction [Not Recovered/Not Resolved]

NARRATIVE: CASE EVENT DATE: 20231227
